FAERS Safety Report 8024487-0 (Version None)
Quarter: 2012Q1

REPORT INFORMATION
  Report Type: 
  Country: None (occurrence: None)
  Receive Date: 20120103
  Receipt Date: 20111220
  Transmission Date: 20120608
  Serious: No
  Sender: FDA-Public Use
  Company Number: 2011-01333

PATIENT
  Age: 32 Year
  Sex: Female
  Weight: 74.8435 kg

DRUGS (2)
  1. EFFEXOR [Concomitant]
  2. ZICAM COLD REMEDY ORAL MIST [Suspect]
     Indication: NASOPHARYNGITIS
     Dosage: 4 SPRAYS AS DIRECTED
     Dates: start: 20111220, end: 20111220

REACTIONS (2)
  - AGEUSIA [None]
  - HYPOAESTHESIA ORAL [None]
